FAERS Safety Report 10370755 (Version 1)
Quarter: 2014Q1

REPORT INFORMATION
  Report Type: Spontaneous
  Country: US (occurrence: None)
  Receive Date: 20140306
  Receipt Date: 20140306
  Transmission Date: 20141002
  Serious: Yes (Hospitalization)
  Sender: FDA-Public Use
  Company Number: 163-21880-13010080

PATIENT
  Age: 75 Year
  Sex: Female

DRUGS (17)
  1. REVLIMID (LENALIDOMIDE) (5 MILLIGRAMS, CAPSULES) [Suspect]
     Indication: PLASMA CELL MYELOMA
     Route: 048
     Dates: start: 20120621
  2. SENSIPAR (CINACALCET HYDROCHLORIDE) [Concomitant]
  3. VELACDE (BORTEZOMIB) [Concomitant]
  4. DECADRON (DEXAMETHASONE) [Concomitant]
  5. KCL (POTASSIUM CHLORIDE) [Concomitant]
  6. COMPAZINE (PROCHLORPERAZINE EDISYLATE) [Concomitant]
  7. COUMADIN (WARFARIN SODIUM) [Concomitant]
  8. FAMVIR (FAMICLOVIR) [Concomitant]
  9. BABY ASPIRIN (ACETYLSALICYLIC ACID) [Concomitant]
  10. LASIX (FUROSEMIDE) [Concomitant]
  11. FOLBEE PLUS (COMBIVENT C) (TABLETS) [Concomitant]
  12. ZOCOR (SIMVASTATIN) (TABLETS) [Concomitant]
  13. ATENOLOL [Concomitant]
  14. DIOVAN (VALSARTAN) [Concomitant]
  15. AMLODIPINE [Concomitant]
  16. COLACE (DOCUSATE SODIUM) [Concomitant]
  17. ZOFRAN (ONDANSETRON HYDROCHLORIDE) [Concomitant]

REACTIONS (6)
  - Thrombocytopenia [None]
  - Diarrhoea [None]
  - Anaemia [None]
  - Hypokalaemia [None]
  - Hypotension [None]
  - Drug dose omission [None]
